FAERS Safety Report 9267338 (Version 1)
Quarter: 2013Q2

REPORT INFORMATION
  Report Type: Spontaneous
  Country: US (occurrence: US)
  Receive Date: 20130502
  Receipt Date: 20130502
  Transmission Date: 20140414
  Serious: No
  Sender: FDA-Public Use
  Company Number: US-009507513-1304USA015341

PATIENT
  Age: 92 Year
  Sex: Female

DRUGS (1)
  1. CLARITIN [Suspect]
     Route: 048

REACTIONS (1)
  - Drug ineffective [Unknown]
